FAERS Safety Report 10483992 (Version 2)
Quarter: 2014Q4

REPORT INFORMATION
  Report Type: Spontaneous
  Country: US (occurrence: US)
  Receive Date: 20140930
  Receipt Date: 20141016
  Transmission Date: 20150528
  Serious: No
  Sender: FDA-Public Use
  Company Number: US-AMGEN-USASP2014073698

PATIENT
  Age: 71 Year
  Sex: Female
  Weight: 48.98 kg

DRUGS (2)
  1. PROLIA [Suspect]
     Active Substance: DENOSUMAB
     Indication: OSTEOPOROSIS POSTMENOPAUSAL
     Dosage: 60 MG, Q6MO
     Route: 058
     Dates: start: 20140701
  2. TETANUS ADS IMPFSTOFF [Concomitant]
     Dates: start: 201409, end: 201409

REACTIONS (3)
  - Injection site warmth [Unknown]
  - Rash [Recovered/Resolved]
  - Injection site erythema [Unknown]

NARRATIVE: CASE EVENT DATE: 20140920
